FAERS Safety Report 6487297-1 (Version None)
Quarter: 2009Q4

REPORT INFORMATION
  Report Type: 
  Country: None (occurrence: None)
  Receive Date: 20091210
  Receipt Date: 20091126
  Transmission Date: 20100525
  Serious: Yes (Life-Threatening, Hospitalization)
  Sender: FDA-Public Use
  Company Number: FR-TYCO HEALTHCARE/MALLINCKRODT-T200902287

PATIENT
  Sex: Male
  Weight: 61 kg

DRUGS (12)
  1. OPTIJECT [Suspect]
     Indication: COMPUTERISED TOMOGRAM
     Dosage: 125 ML, SINGLE
     Route: 042
     Dates: start: 20091125, end: 20091125
  2. PLAVIX [Concomitant]
     Dosage: UNK DF, QD
     Route: 065
  3. SELOKEN                            /00376902/ [Concomitant]
     Dosage: 100 MG, BID
     Route: 065
  4. LASIX [Concomitant]
     Dosage: 20 MG, QD
     Route: 065
  5. ODRIK [Concomitant]
     Dosage: 4 MG, QD
     Route: 065
  6. CRESTOR [Concomitant]
     Dosage: 10 MG, QD
     Route: 065
  7. LANSOPRAZOLE [Concomitant]
     Dosage: UNK
  8. PROZAC                             /00724401/ [Concomitant]
     Dosage: 30 MG, QD
     Route: 065
  9. LEXOMIL [Concomitant]
     Dosage: 1 DF, QD
     Route: 065
  10. LYRICA [Concomitant]
     Dosage: 50 MG, TID
     Route: 065
  11. LYRICA [Concomitant]
     Dosage: 50 MG, UNK
     Route: 065
  12. LYRICA [Concomitant]
     Dosage: 50 MG, UNK
     Route: 065

REACTIONS (5)
  - ACUTE PULMONARY OEDEMA [None]
  - CYANOSIS [None]
  - DYSPNOEA [None]
  - LIVEDO RETICULARIS [None]
  - TACHYPNOEA [None]
